FAERS Safety Report 25988984 (Version 1)
Quarter: 2025Q4

REPORT INFORMATION
  Report Type: Spontaneous
  Country: US (occurrence: US)
  Receive Date: 20251103
  Receipt Date: 20251103
  Transmission Date: 20260117
  Serious: No
  Sender: RIGEL PHARMACEUTICALS
  Company Number: US -RIGEL Pharmaceuticals, INC-20250700173

PATIENT
  Sex: Female

DRUGS (1)
  1. GAVRETO [Suspect]
     Active Substance: PRALSETINIB
     Indication: Lung neoplasm malignant
     Dosage: 400MG, QD
     Route: 048

REACTIONS (8)
  - Rhinalgia [Unknown]
  - Ear pain [Unknown]
  - Pruritus [Unknown]
  - Infusion [Unknown]
  - Musculoskeletal discomfort [Unknown]
  - Loss of personal independence in daily activities [Recovered/Resolved]
  - Limb discomfort [Unknown]
  - Headache [Unknown]
